FAERS Safety Report 20726092 (Version 2)
Quarter: 2022Q4

REPORT INFORMATION
  Report Type: Report from Study
  Country: US (occurrence: US)
  Receive Date: 20220419
  Receipt Date: 20221004
  Transmission Date: 20230113
  Serious: Yes (Other)
  Sender: FDA-Public Use
  Company Number: US-SA-SAC20220418000288

PATIENT
  Age: 50 Year
  Sex: Female

DRUGS (9)
  1. AUBAGIO [Suspect]
     Active Substance: TERIFLUNOMIDE
     Indication: Multiple sclerosis
     Dosage: 14 MG, QD
     Route: 048
     Dates: start: 20170508
  2. PIROXICAM [Concomitant]
     Active Substance: PIROXICAM
  3. MAXALT [Concomitant]
     Active Substance: RIZATRIPTAN BENZOATE
  4. IRON [Concomitant]
     Active Substance: IRON
  5. XANAX [Concomitant]
     Active Substance: ALPRAZOLAM
  6. CEFIXIME [Concomitant]
     Active Substance: CEFIXIME
  7. GABAPENTIN [Concomitant]
     Active Substance: GABAPENTIN
  8. ZOLOFT [Concomitant]
     Active Substance: SERTRALINE HYDROCHLORIDE
  9. LISINOPRIL [Concomitant]
     Active Substance: LISINOPRIL

REACTIONS (5)
  - Multiple sclerosis relapse [Not Recovered/Not Resolved]
  - Neck pain [Not Recovered/Not Resolved]
  - Fatigue [Not Recovered/Not Resolved]
  - Balance disorder [Not Recovered/Not Resolved]
  - Product dose omission issue [Unknown]

NARRATIVE: CASE EVENT DATE: 20220928
